FAERS Safety Report 14535318 (Version 4)
Quarter: 2018Q2

REPORT INFORMATION
  Report Type: Spontaneous
  Country: GB (occurrence: GB)
  Receive Date: 20180215
  Receipt Date: 20180622
  Transmission Date: 20180711
  Serious: Yes (Disabling)
  Sender: FDA-Public Use
  Company Number: GB-PFIZER INC-2018062944

PATIENT
  Age: 33 Year
  Sex: Female
  Weight: 47 kg

DRUGS (18)
  1. IBUPROFEN. [Suspect]
     Active Substance: IBUPROFEN
     Dosage: UNK
     Route: 065
     Dates: start: 20180119
  2. PARACETAMOL [Concomitant]
     Active Substance: ACETAMINOPHEN
     Dosage: 2DF, AS NEEDED (FOUR TIMES DAILY)
     Dates: start: 20160208
  3. PROMETHAZINE HYDROCHLORIDE. [Concomitant]
     Active Substance: PROMETHAZINE HYDROCHLORIDE
     Dosage: 2 DF, ONCE DAILY (AT NIGHT)
     Route: 065
     Dates: start: 20141212
  4. TRAZODONE [Concomitant]
     Active Substance: TRAZODONE HYDROCHLORIDE
     Dosage: 2 DF, ONCE DAILY (AT NIGHT)
     Route: 065
     Dates: start: 20170516
  5. SALBUTAMOL [Concomitant]
     Active Substance: ALBUTEROL
     Dosage: 2 DF, AS NEEDED (PUFFS)
     Dates: start: 20110811
  6. CLARITHROMYCIN. [Concomitant]
     Active Substance: CLARITHROMYCIN
     Dosage: 1 DF, 1X/DAY
     Dates: start: 20180104, end: 20180111
  7. PREDNISOLONE. [Concomitant]
     Active Substance: PREDNISOLONE
     Dosage: 8 DF, 1X/DAY (FOR FIVE DAYS)
     Dates: start: 20180104, end: 20180109
  8. CYCLIZINE [Concomitant]
     Active Substance: CYCLIZINE
     Indication: NAUSEA
     Dosage: 1 DF, AS NEEDED (THREE TIMES DAILY)
     Dates: start: 20161128
  9. MORPHINE SULFATE. [Concomitant]
     Active Substance: MORPHINE SULFATE
     Dosage: 10MG, AS NEEDED (FOUR TIMES DAILY)
     Route: 065
     Dates: start: 20160316
  10. TRAMADOL. [Concomitant]
     Active Substance: TRAMADOL
     Dosage: 4 UNK, DAILY (TAKE 1 OR 2)
     Route: 065
     Dates: start: 20151230
  11. DOXYCYCLINE. [Concomitant]
     Active Substance: DOXYCYCLINE
     Dosage: TAKE TWO NOW THEN ONE DAILY FOR 4 DAYS TO TREAT
     Route: 065
     Dates: start: 20171208, end: 20171213
  12. FLUOXETINE [Concomitant]
     Active Substance: FLUOXETINE HYDROCHLORIDE
     Dosage: 1 DF, ONCE DAILY (EVERY MORNING)
     Dates: start: 20170621
  13. SERETIDE [Concomitant]
     Active Substance: FLUTICASONE PROPIONATE\SALMETEROL XINAFOATE
     Dosage: 1 DF, 1X/DAY
     Dates: start: 20160208
  14. AMOXICILLIN. [Concomitant]
     Active Substance: AMOXICILLIN
     Dosage: 10 ML, 1X/DAY
     Dates: start: 20171205, end: 20171212
  15. QUETIAPINE. [Concomitant]
     Active Substance: QUETIAPINE
     Dosage: 1 DF, ONCE DAILY (EVERY MORNING)
     Dates: start: 20170621
  16. MACROGOL [Concomitant]
     Active Substance: POLYETHYLENE GLYCOLS
     Dosage: 1 DF, 1X/DAY
     Dates: start: 20151012
  17. GABAPENTIN. [Concomitant]
     Active Substance: GABAPENTIN
     Dosage: 1 DF, ONCE DAILY (EVERY MORNING)
     Dates: start: 20160208
  18. ONDANSETRON [Concomitant]
     Active Substance: ONDANSETRON
     Dosage: 1 DF, AS NEEDED (TWICE DAILY)
     Route: 065
     Dates: start: 20161128

REACTIONS (1)
  - Dyspnoea [Recovered/Resolved]

NARRATIVE: CASE EVENT DATE: 20180123
